FAERS Safety Report 16257439 (Version 1)
Quarter: 2019Q2

REPORT INFORMATION
  Report Type: Spontaneous
  Country: US (occurrence: US)
  Receive Date: 20190430
  Receipt Date: 20190430
  Transmission Date: 20190711
  Serious: Yes (Other)
  Sender: FDA-Public Use
  Company Number: US-PFIZER INC-2019175440

PATIENT
  Age: 8 Year
  Sex: Male

DRUGS (5)
  1. GENOTROPIN [Suspect]
     Active Substance: SOMATROPIN
     Dosage: 0.5 MG, 1X/DAY, [EVERY NIGHT AT BEDTIME]
     Route: 058
  2. CLARITHROMYCIN. [Concomitant]
     Active Substance: CLARITHROMYCIN
     Dosage: 250 MG, UNK
  3. AMOXICILLIN. [Concomitant]
     Active Substance: AMOXICILLIN
     Dosage: 400 MG, UNK
  4. OFLOXACIN. [Concomitant]
     Active Substance: OFLOXACIN
     Dosage: UNK
  5. OXYCODONE HYDROCHLORIDE. [Concomitant]
     Active Substance: OXYCODONE HYDROCHLORIDE
     Dosage: UNK [5MG/5]

REACTIONS (1)
  - Pneumonia [Unknown]
